FAERS Safety Report 22059153 (Version 1)
Quarter: 2023Q1

REPORT INFORMATION
  Report Type: Spontaneous
  Country: CA (occurrence: None)
  Receive Date: 20230303
  Receipt Date: 20230303
  Transmission Date: 20230418
  Serious: Yes (Hospitalization, Other)
  Sender: FDA-Public Use
  Company Number: CA-MLMSERVICE-20230216-4100317-1

PATIENT
  Age: 26 Year
  Sex: Female

DRUGS (3)
  1. FENTANYL [Suspect]
     Active Substance: FENTANYL
     Indication: Product used for unknown indication
     Dosage: UNKNOWN
     Route: 065
  2. FENTANYL [Suspect]
     Active Substance: FENTANYL
     Route: 065
  3. FENTANYL [Suspect]
     Active Substance: FENTANYL
     Route: 065

REACTIONS (6)
  - Vomiting [Recovered/Resolved]
  - Pain in extremity [Recovered/Resolved]
  - Restlessness [Recovered/Resolved]
  - Nausea [Recovered/Resolved]
  - Drug abuse [Recovered/Resolved]
  - Drug withdrawal syndrome [Recovered/Resolved]
